FAERS Safety Report 5722028-1 (Version None)
Quarter: 2008Q2

REPORT INFORMATION
  Report Type: 
  Country: None (occurrence: None)
  Receive Date: 20080429
  Receipt Date: 20080418
  Transmission Date: 20081010
  Serious: Yes (Other)
  Sender: FDA-Public Use
  Company Number: US-ELI_LILLY_AND_COMPANY-US200804004971

PATIENT
  Sex: Female

DRUGS (2)
  1. BYETTA [Suspect]
     Dosage: UNK, UNKNOWN
     Dates: start: 20050101
  2. BYETTA [Suspect]
     Dosage: 10 UG, UNKNOWN

REACTIONS (5)
  - BLOOD GLUCOSE INCREASED [None]
  - CHEMOTHERAPY [None]
  - DYSPHONIA [None]
  - HYPERSENSITIVITY [None]
  - NASOPHARYNGITIS [None]
